FAERS Safety Report 5878533-0 (Version None)
Quarter: 2008Q3

REPORT INFORMATION
  Report Type: 
  Country: None (occurrence: None)
  Receive Date: 20080909
  Receipt Date: 20080827
  Transmission Date: 20090109
  Serious: Yes (Hospitalization)
  Sender: FDA-Public Use
  Company Number: AZAAU200800285

PATIENT
  Age: 77 Year
  Sex: Male
  Weight: 81 kg

DRUGS (2)
  1. VIDAZA [Suspect]
     Indication: MYELODYSPLASTIC SYNDROME
     Dosage: 76.6 MG/M2, DAILY X 7, SUBCUTANEOUS
     Route: 058
     Dates: start: 20080718, end: 20080724
  2. THALIDOMIDE [Suspect]
     Indication: MYELODYSPLASTIC SYNDROME
     Dosage: 50 MCG, DAILY, ORAL
     Route: 048
     Dates: start: 20080718

REACTIONS (2)
  - NEUTROPENIA [None]
  - SKIN INFECTION [None]
